FAERS Safety Report 6725779-5 (Version None)
Quarter: 2010Q2

REPORT INFORMATION
  Report Type: 
  Country: None (occurrence: None)
  Receive Date: 20100514
  Receipt Date: 20081006
  Transmission Date: 20101027
  Serious: Yes (Death, Hospitalization)
  Sender: FDA-Public Use
  Company Number: NL-SANOFI-AVENTIS-F01200801548

PATIENT
  Age: 71 Year
  Sex: Male

DRUGS (9)
  1. OXALIPLATIN [Suspect]
     Indication: COLORECTAL CANCER
     Dosage: DOSE TEXT: DAY 1, Q3WUNIT DOSE: 130 MG/M2
     Route: 041
     Dates: start: 20080603, end: 20080603
  2. OXALIPLATIN [Suspect]
     Dosage: DOSE TEXT: DAY 1, Q3WUNIT DOSE: 130 MG/M2
     Route: 041
     Dates: start: 20080828, end: 20080828
  3. XELODA [Suspect]
     Indication: COLORECTAL CANCER
     Dosage: DOSE TEXT: BID, DAY 1-14, Q3WUNIT DOSE: 1000 MG/M2
     Route: 048
     Dates: start: 20080603, end: 20080828
  4. AVASTIN [Suspect]
     Indication: COLORECTAL CANCER
     Dosage: DOSE TEXT: DAY 1, Q3WUNIT DOSE: 7.5 MG/KG
     Route: 041
     Dates: start: 20080603, end: 20080603
  5. AVASTIN [Suspect]
     Dosage: DOSE TEXT: DAY 1, Q3WUNIT DOSE: 7.5 MG/KG
     Route: 041
     Dates: start: 20080828, end: 20080828
  6. PARACETAMOL [Concomitant]
  7. NAPROXEN [Concomitant]
  8. OXYCODONE HCL [Concomitant]
  9. FENTANYL [Concomitant]

REACTIONS (5)
  - DYSPNOEA [None]
  - PLEURAL EFFUSION [None]
  - PNEUMONIA [None]
  - PNEUMONITIS [None]
  - SEPSIS [None]
